FAERS Safety Report 13329603 (Version 7)
Quarter: 2018Q2

REPORT INFORMATION
  Report Type: Spontaneous
  Country: ES (occurrence: ES)
  Receive Date: 20170313
  Receipt Date: 20180417
  Transmission Date: 20180711
  Serious: Yes (Death, Hospitalization, Disabling, Other)
  Sender: FDA-Public Use
  Company Number: ES-GLAXOSMITHKLINE-ES2017GSK031398

PATIENT
  Age: 19 Year
  Sex: Female

DRUGS (7)
  1. POLARAMINE [Concomitant]
     Active Substance: DEXCHLORPHENIRAMINE MALEATE
     Indication: PRODUCT USED FOR UNKNOWN INDICATION
     Dosage: UNK
  2. AZATHIOPRINE. [Concomitant]
     Active Substance: AZATHIOPRINE
     Indication: PRODUCT USED FOR UNKNOWN INDICATION
     Dosage: UNKNOWN
     Route: 048
  3. RAMIPRIL. [Concomitant]
     Active Substance: RAMIPRIL
     Indication: PRODUCT USED FOR UNKNOWN INDICATION
     Dosage: UNK
     Route: 065
  4. SINTROM [Concomitant]
     Active Substance: ACENOCOUMAROL
     Indication: PRODUCT USED FOR UNKNOWN INDICATION
     Dosage: UNK
     Route: 065
  5. PRIMPERAN [Concomitant]
     Active Substance: METOCLOPRAMIDE HYDROCHLORIDE
     Dosage: UNK
     Route: 065
  6. PREDNISONE. [Concomitant]
     Active Substance: PREDNISONE
     Indication: PRODUCT USED FOR UNKNOWN INDICATION
     Dosage: UNK
     Route: 065
  7. BENLYSTA [Suspect]
     Active Substance: BELIMUMAB
     Indication: SYSTEMIC LUPUS ERYTHEMATOSUS
     Dosage: UNK
     Route: 065
     Dates: start: 20170119, end: 20170119

REACTIONS (23)
  - Atrial fibrillation [Unknown]
  - Coma [Not Recovered/Not Resolved]
  - Haemoptysis [Recovered/Resolved with Sequelae]
  - Vomiting [Unknown]
  - Syncope [Unknown]
  - Cardiac arrest [Fatal]
  - Pulmonary haemorrhage [Recovered/Resolved with Sequelae]
  - Tonic clonic movements [Recovered/Resolved]
  - Ill-defined disorder [Unknown]
  - Patient isolation [Unknown]
  - Dizziness [Unknown]
  - Malaise [Unknown]
  - Ventricular fibrillation [Unknown]
  - Cardiogenic shock [Unknown]
  - Brain hypoxia [Not Recovered/Not Resolved]
  - Cardio-respiratory arrest [Recovered/Resolved with Sequelae]
  - Tracheo-oesophageal fistula [Unknown]
  - Decreased activity [Unknown]
  - Paraesthesia [Recovered/Resolved]
  - Encephalopathy [Unknown]
  - Eye movement disorder [Recovered/Resolved]
  - Hypotonia [Unknown]
  - Hand deformity [Unknown]

NARRATIVE: CASE EVENT DATE: 2017
